FAERS Safety Report 16001240 (Version 1)
Quarter: 2019Q1

REPORT INFORMATION
  Report Type: Spontaneous
  Country: US (occurrence: US)
  Receive Date: 20190225
  Receipt Date: 20190225
  Transmission Date: 20190418
  Serious: Yes (Other)
  Sender: FDA-Public Use
  Company Number: US-AMNEAL PHARMACEUTICALS COMPANY GMBH-2019AGH00007

PATIENT
  Age: 8 Day
  Sex: Male
  Weight: 3.3 kg

DRUGS (4)
  1. DOXYCYCLINE HYCLATE. [Suspect]
     Active Substance: DOXYCYCLINE HYCLATE
     Indication: CYSTIC LYMPHANGIOMA
     Dosage: 500 MG (~150 MG/KG)
     Route: 065
  2. IOHEXOL [Suspect]
     Active Substance: IOHEXOL
     Indication: SCLEROTHERAPY
  3. DOXYCYCLINE HYCLATE. [Suspect]
     Active Substance: DOXYCYCLINE HYCLATE
     Indication: SCLEROTHERAPY
     Dosage: 300 MG
     Route: 065
  4. IOHEXOL [Suspect]
     Active Substance: IOHEXOL
     Indication: CYSTIC LYMPHANGIOMA
     Dosage: 10 ML
     Route: 065

REACTIONS (7)
  - Oxygen saturation decreased [Recovered/Resolved]
  - Metabolic acidosis [Unknown]
  - Hypoglycaemia [Unknown]
  - Haemolytic anaemia [Unknown]
  - Methaemoglobinaemia [Recovered/Resolved]
  - Prescribed overdose [Recovered/Resolved]
  - Off label use [Recovered/Resolved]
